FAERS Safety Report 7602383-8 (Version None)
Quarter: 2011Q3

REPORT INFORMATION
  Report Type: 
  Country: None (occurrence: None)
  Receive Date: 20110712
  Receipt Date: 20110629
  Transmission Date: 20111222
  Serious: No
  Sender: FDA-Public Use
  Company Number: US-BIOGENIDEC-2011BI024013

PATIENT
  Age: 47 Year
  Sex: Female

DRUGS (1)
  1. TYSABRI [Suspect]
     Indication: MULTIPLE SCLEROSIS
     Route: 042
     Dates: start: 20110105

REACTIONS (4)
  - HYPERHIDROSIS [None]
  - INFUSION RELATED REACTION [None]
  - THROAT TIGHTNESS [None]
  - ABDOMINAL PAIN [None]
